FAERS Safety Report 23007995 (Version 2)
Quarter: 2023Q4

REPORT INFORMATION
  Report Type: Report from Study
  Country: HU (occurrence: HU)
  Receive Date: 20230929
  Receipt Date: 20231026
  Transmission Date: 20240109
  Serious: Yes (Other)
  Sender: FDA-Public Use
  Company Number: HU-002147023-NVSC2023HU043822

PATIENT
  Sex: Female

DRUGS (10)
  1. KISQALI [Suspect]
     Active Substance: RIBOCICLIB
     Indication: Breast cancer
     Dosage: 1X3
     Route: 065
     Dates: start: 20230117, end: 20230516
  2. KISQALI [Suspect]
     Active Substance: RIBOCICLIB
     Indication: Metastasis
     Dosage: 1X3
     Route: 065
     Dates: start: 20230525, end: 20230719
  3. KISQALI [Suspect]
     Active Substance: RIBOCICLIB
     Dosage: 1X3
     Route: 065
     Dates: start: 20230727, end: 20230921
  4. LETROZOLE [Suspect]
     Active Substance: LETROZOLE
     Indication: Breast cancer
     Dosage: UNK
     Route: 065
     Dates: start: 20230117, end: 20230516
  5. LETROZOLE [Suspect]
     Active Substance: LETROZOLE
     Indication: Metastasis
     Dosage: UNK
     Route: 065
     Dates: start: 20230525, end: 20230719
  6. LETROZOLE [Suspect]
     Active Substance: LETROZOLE
     Dosage: UNK
     Route: 065
     Dates: start: 20230717
  7. LETROZOLE [Suspect]
     Active Substance: LETROZOLE
     Dosage: 2.5 MG, QD
     Route: 048
  8. PACLITAXEL [Concomitant]
     Active Substance: PACLITAXEL
     Indication: Product used for unknown indication
     Dosage: UNK
     Route: 065
  9. ZOLEDRONIC ACID [Concomitant]
     Active Substance: ZOLEDRONIC ACID
     Indication: Product used for unknown indication
     Dosage: 3.2 MG
     Route: 065
     Dates: start: 20230622
  10. ALBUTEROL SULFATE [Concomitant]
     Active Substance: ALBUTEROL SULFATE
     Indication: Product used for unknown indication
     Dosage: 500 ML
     Route: 065
     Dates: start: 20230622

REACTIONS (20)
  - Hyperkalaemia [Recovered/Resolved]
  - Carcinoembryonic antigen increased [Recovered/Resolved]
  - Neutropenia [Recovered/Resolved]
  - Glomerular filtration rate decreased [Recovered/Resolved]
  - White blood cell disorder [Recovered/Resolved]
  - Red blood cells urine positive [Recovered/Resolved]
  - Diarrhoea [Recovered/Resolved]
  - Bacterial test positive [Recovered/Resolved]
  - Mean cell volume increased [Recovered/Resolved]
  - Mean cell haemoglobin increased [Recovered/Resolved]
  - Monocyte count increased [Recovered/Resolved]
  - Red cell distribution width increased [Recovered/Resolved]
  - Red blood cell count decreased [Recovered/Resolved]
  - Basophil count increased [Recovered/Resolved]
  - Haematocrit decreased [Recovered/Resolved]
  - Haemoglobin decreased [Recovered/Resolved]
  - Lymphocyte count abnormal [Recovered/Resolved]
  - Blood glucose increased [Recovered/Resolved]
  - Blood magnesium decreased [Recovered/Resolved]
  - Blood creatinine increased [Recovered/Resolved]

NARRATIVE: CASE EVENT DATE: 20230516
